FAERS Safety Report 17014376 (Version 1)
Quarter: 2019Q4

REPORT INFORMATION
  Report Type: Spontaneous
  Country: GB (occurrence: GB)
  Receive Date: 20191111
  Receipt Date: 20191111
  Transmission Date: 20200122
  Serious: Yes (Life-Threatening, Hospitalization)
  Sender: FDA-Public Use
  Company Number: GB-TEVA-2019-GB-1135667

PATIENT
  Age: 55 Year
  Sex: Female
  Weight: 57 kg

DRUGS (5)
  1. ANADIN EXTRA [Suspect]
     Active Substance: ACETAMINOPHEN\ASPIRIN\CAFFEINE
     Indication: PAIN
     Dosage: NOT SURE
     Route: 048
  2. IBUPROFEN LYSINE. [Suspect]
     Active Substance: IBUPROFEN LYSINE
     Indication: PAIN
     Dosage: 3 DF/ DAY  400MG TDS AND 342MG TDS - TESCO PRODUCT
     Route: 048
  3. RIZATRIPTAN. [Concomitant]
     Active Substance: RIZATRIPTAN
     Dates: start: 20191012
  4. BEROCCA [Concomitant]
     Active Substance: VITAMINS
  5. NAPROXEN. [Suspect]
     Active Substance: NAPROXEN
     Indication: MIGRAINE
     Dosage: 1000MG/ DAY/ 2 DAYS
     Route: 048
     Dates: start: 20191010, end: 20191012

REACTIONS (3)
  - Abdominal pain upper [Unknown]
  - Flatulence [Unknown]
  - Duodenal ulcer perforation [Recovered/Resolved]

NARRATIVE: CASE EVENT DATE: 20191010
